FAERS Safety Report 18025924 (Version 1)
Quarter: 2020Q3

REPORT INFORMATION
  Report Type: Report from Study
  Country: MX (occurrence: MX)
  Receive Date: 20200715
  Receipt Date: 20200715
  Transmission Date: 20201103
  Serious: Yes (Other)
  Sender: FDA-Public Use
  Company Number: MX-JNJFOC-20200708092

PATIENT
  Sex: Female
  Weight: 78 kg

DRUGS (8)
  1. OSELTAMIVIR [Concomitant]
     Active Substance: OSELTAMIVIR
  2. REMICADE [Suspect]
     Active Substance: INFLIXIMAB
     Indication: ANKYLOSING SPONDYLITIS
     Route: 042
     Dates: start: 20140719
  3. AZITHROMYCIN ANHYDROUS. [Concomitant]
     Active Substance: AZITHROMYCIN ANHYDROUS
  4. IVERMECTIN. [Concomitant]
     Active Substance: IVERMECTIN
  5. NITAZOXANIDA [Concomitant]
  6. MOMETASONE [Concomitant]
     Active Substance: MOMETASONE
  7. PRANOSINE [Concomitant]
  8. VITAMIN D NOS [Concomitant]
     Active Substance: VITAMIN D NOS

REACTIONS (1)
  - Coronavirus infection [Unknown]

NARRATIVE: CASE EVENT DATE: 2020
